FAERS Safety Report 11828717 (Version 4)
Quarter: 2016Q4

REPORT INFORMATION
  Report Type: Spontaneous
  Country: CA (occurrence: CA)
  Receive Date: 20151211
  Receipt Date: 20161128
  Transmission Date: 20170206
  Serious: Yes (Hospitalization)
  Sender: FDA-Public Use
  Company Number: CA-BRISTOL-MYERS SQUIBB COMPANY-BMS-2015-085461

PATIENT
  Age: 41 Year
  Sex: Female

DRUGS (8)
  1. ABILIFY [Interacting]
     Active Substance: ARIPIPRAZOLE
     Indication: PRODUCT USED FOR UNKNOWN INDICATION
     Dosage: 1 MG, UNK
     Route: 065
  2. CYMBALTA [Interacting]
     Active Substance: DULOXETINE HYDROCHLORIDE
     Indication: PRODUCT USED FOR UNKNOWN INDICATION
     Dosage: 60 MG, UNK
     Route: 065
  3. QUETIAPINE. [Interacting]
     Active Substance: QUETIAPINE
     Indication: INSOMNIA
     Dosage: 25 MG, QD
     Route: 065
  4. CYMBALTA [Interacting]
     Active Substance: DULOXETINE HYDROCHLORIDE
     Indication: PRODUCT USED FOR UNKNOWN INDICATION
     Dosage: 30 MG, UNK
     Route: 065
  5. ABILIFY [Suspect]
     Active Substance: ARIPIPRAZOLE
     Indication: PRODUCT USED FOR UNKNOWN INDICATION
     Dosage: 0.5 MG, UNK
     Route: 065
  6. ABILIFY MAINTENA [Interacting]
     Active Substance: ARIPIPRAZOLE
     Indication: PRODUCT USED FOR UNKNOWN INDICATION
     Dosage: 2 G, UNK
     Route: 065
  7. CLONAZEPAM. [Interacting]
     Active Substance: CLONAZEPAM
     Indication: INSOMNIA
     Dosage: UNK, QD
     Route: 065
  8. CYMBALTA [Interacting]
     Active Substance: DULOXETINE HYDROCHLORIDE
     Indication: PRODUCT USED FOR UNKNOWN INDICATION
     Dosage: 90 MG, UNK
     Route: 065

REACTIONS (6)
  - Mood altered [Unknown]
  - Stubbornness [Unknown]
  - Thinking abnormal [Unknown]
  - Prescribed underdose [Unknown]
  - Abnormal behaviour [Unknown]
  - Drug interaction [Unknown]
